FAERS Safety Report 7256729-3 (Version None)
Quarter: 2011Q1

REPORT INFORMATION
  Report Type: 
  Country: None (occurrence: None)
  Receive Date: 20110129
  Receipt Date: 20100715
  Transmission Date: 20110831
  Serious: No
  Sender: FDA-Public Use
  Company Number: US-ABBOTT-10P-163-0659268-00

PATIENT
  Sex: Female
  Weight: 92.162 kg

DRUGS (8)
  1. HUMIRA [Suspect]
     Indication: ANKYLOSING SPONDYLITIS
     Dates: start: 20100401, end: 20100714
  2. ACIPHEX [Concomitant]
     Indication: GASTROOESOPHAGEAL REFLUX DISEASE
  3. LISINOPRIL [Concomitant]
     Indication: HYPERTENSION
  4. METOPROLOL [Concomitant]
     Indication: HYPERTENSION
  5. TIZANIDINE [Concomitant]
     Indication: MUSCLE RELAXANT THERAPY
  6. CYMBALTA [Concomitant]
     Indication: FIBROMYALGIA
  7. ACIPHEX [Concomitant]
     Indication: BARRETT'S OESOPHAGUS
  8. CYMBALTA [Concomitant]
     Indication: DEPRESSION

REACTIONS (13)
  - HYPOPHAGIA [None]
  - PYREXIA [None]
  - OROPHARYNGEAL PAIN [None]
  - BLOOD PRESSURE INCREASED [None]
  - PHARYNGEAL ERYTHEMA [None]
  - EYE PAIN [None]
  - CHILLS [None]
  - DYSPHONIA [None]
  - ANXIETY [None]
  - NERVOUSNESS [None]
  - HEART RATE INCREASED [None]
  - FEELING JITTERY [None]
  - TREMOR [None]
